FAERS Safety Report 8006524 (Version 5)
Quarter: 2013Q4

REPORT INFORMATION
  Report Type: Spontaneous
  Country: US (occurrence: US)
  Receive Date: 20110623
  Receipt Date: 20131114
  Transmission Date: 20140711
  Serious: Yes (Other)
  Sender: FDA-Public Use
  Company Number: US-ROCHE-784856

PATIENT
  Sex: Female
  Weight: 63.56 kg

DRUGS (3)
  1. ACCUTANE [Suspect]
     Indication: ACNE
     Route: 048
  2. ACCUTANE [Suspect]
     Route: 065
     Dates: start: 200401, end: 200406
  3. AMNESTEEM [Suspect]
     Indication: ACNE
     Route: 065
     Dates: start: 200412, end: 200502

REACTIONS (7)
  - Colitis ulcerative [Unknown]
  - Crohn^s disease [Unknown]
  - Inflammatory bowel disease [Unknown]
  - Anxiety [Unknown]
  - Rectal polyp [Unknown]
  - Lip dry [Unknown]
  - Dry eye [Unknown]
